FAERS Safety Report 8657695 (Version 3)
Quarter: 2013Q1

REPORT INFORMATION
  Report Type: Spontaneous
  Country: US (occurrence: US)
  Receive Date: 20120710
  Receipt Date: 20130205
  Transmission Date: 20140127
  Serious: Yes (Congenital Anomaly, Other)
  Sender: FDA-Public Use
  Company Number: US-JNJFOC-20120701867

PATIENT
  Age: 0 Year
  Sex: Female

DRUGS (6)
  1. TOPAMAX [Suspect]
     Indication: FOETAL EXPOSURE DURING PREGNANCY
     Route: 064
  2. KEPPRA [Suspect]
     Indication: FOETAL EXPOSURE DURING PREGNANCY
     Route: 064
  3. NEURONTIN [Suspect]
     Indication: FOETAL EXPOSURE DURING PREGNANCY
     Route: 064
  4. INTERFERON BETA-1B [Suspect]
     Indication: FOETAL EXPOSURE DURING PREGNANCY
     Route: 064
  5. CLONAZEPAM [Suspect]
     Indication: FOETAL EXPOSURE DURING PREGNANCY
     Route: 064
  6. GYNAZOLE 1 [Suspect]
     Indication: FOETAL EXPOSURE DURING PREGNANCY
     Route: 064

REACTIONS (11)
  - Hyperkinesia [Unknown]
  - Developmental hip dysplasia [Unknown]
  - Developmental delay [Unknown]
  - Joint contracture [Recovering/Resolving]
  - Attention deficit/hyperactivity disorder [Unknown]
  - Talipes [Unknown]
  - Nasal septum disorder [Unknown]
  - Sleep disorder [Unknown]
  - Premature baby [Not Recovered/Not Resolved]
  - Congenital flat feet [Unknown]
  - Cerebrovascular disorder [Unknown]
